FAERS Safety Report 4832373-X (Version None)
Quarter: 2005Q4

REPORT INFORMATION
  Report Type: 
  Country: None (occurrence: None)
  Receive Date: 20051117
  Receipt Date: 20051117
  Transmission Date: 20060501
  Serious: Yes (Hospitalization)
  Sender: FDA-Public Use
  Company Number: None

PATIENT
  Age: 46 Year
  Sex: Female
  Weight: 54 kg

DRUGS (6)
  1. CISPLATIN [Suspect]
     Indication: LUNG NEOPLASM MALIGNANT
     Dosage: 53MG
     Dates: start: 20050629, end: 20051005
  2. DOCETAXEL [Suspect]
     Dosage: 60MG
     Dates: start: 20050713, end: 20051005
  3. XANAX [Concomitant]
  4. KLONOPIN [Concomitant]
  5. MULTI-VITAMIN [Concomitant]
  6. DEXAMETHASONE [Concomitant]

REACTIONS (5)
  - BRAIN MASS [None]
  - CEREBRAL HAEMORRHAGE [None]
  - CONFUSIONAL STATE [None]
  - DIZZINESS [None]
  - METASTASES TO CENTRAL NERVOUS SYSTEM [None]
